FAERS Safety Report 7582984-6 (Version None)
Quarter: 2011Q2

REPORT INFORMATION
  Report Type: 
  Country: None (occurrence: None)
  Receive Date: 20110627
  Receipt Date: 20110627
  Transmission Date: 20111010
  Serious: Yes (Life-Threatening)
  Sender: FDA-Public Use
  Company Number: None

PATIENT
  Sex: Female
  Weight: 56.246 kg

DRUGS (7)
  1. LEXAPRO [Concomitant]
  2. NITROFURANTOIN MONOHYDRATE/MACROCRYSTALS [Suspect]
     Indication: CYSTITIS NONINFECTIVE
     Dosage: 1 CAPSULE QD PO
     Route: 048
     Dates: start: 20090401, end: 20110623
  3. NORCO [Concomitant]
  4. SKELAXIN [Concomitant]
  5. TIZANIDINE HCL [Concomitant]
  6. VALTREX [Concomitant]
  7. VITAMIN AND MINERAL PRENATAL SUPPLEMENT W/ FOLIC ACID CAP [Concomitant]

REACTIONS (7)
  - DYSPNOEA [None]
  - CHEST PAIN [None]
  - POLYARTHRITIS [None]
  - CHEST DISCOMFORT [None]
  - DRUG EXPOSURE DURING PREGNANCY [None]
  - NEUROPATHY PERIPHERAL [None]
  - UNEVALUABLE EVENT [None]
